FAERS Safety Report 20945250 (Version 10)
Quarter: 2025Q2

REPORT INFORMATION
  Report Type: Report from Study
  Country: CO (occurrence: CO)
  Receive Date: 20220610
  Receipt Date: 20250617
  Transmission Date: 20250717
  Serious: Yes (Other)
  Sender: TAKEDA
  Company Number: CO-TAKEDA-2022TUS012390

PATIENT
  Age: 26 Year
  Sex: Male
  Weight: 67 kg

DRUGS (2)
  1. VEDOLIZUMAB [Suspect]
     Active Substance: VEDOLIZUMAB
     Indication: Crohn^s disease
     Dates: start: 20210723, end: 20230811
  2. VEDOLIZUMAB [Suspect]
     Active Substance: VEDOLIZUMAB

REACTIONS (12)
  - Loss of consciousness [Unknown]
  - General physical health deterioration [Unknown]
  - Serum ferritin decreased [Unknown]
  - Weight decreased [Unknown]
  - Burnout syndrome [Unknown]
  - Product dose omission issue [Unknown]
  - Frequent bowel movements [Unknown]
  - Impaired work ability [Unknown]
  - Depressed mood [Unknown]
  - Fatigue [Unknown]
  - Arthralgia [Unknown]
  - Influenza [Recovered/Resolved]

NARRATIVE: CASE EVENT DATE: 20220214
